FAERS Safety Report 20345794 (Version 2)
Quarter: 2022Q3

REPORT INFORMATION
  Report Type: Spontaneous
  Country: CA (occurrence: CA)
  Receive Date: 20220118
  Receipt Date: 20220713
  Transmission Date: 20221026
  Serious: Yes (Hospitalization, Other)
  Sender: FDA-Public Use
  Company Number: CA-GLAXOSMITHKLINE-CA2022GSK008299

PATIENT

DRUGS (21)
  1. BUPROPION [Suspect]
     Active Substance: BUPROPION
     Indication: Major depression
     Dosage: 350 MG
     Route: 065
  2. LITHIUM [Suspect]
     Active Substance: LITHIUM
     Indication: Major depression
     Dosage: 1050 MG
     Route: 065
  3. LITHIUM [Suspect]
     Active Substance: LITHIUM
     Dosage: 600 MG
     Route: 065
  4. LAMOTRIGINE [Suspect]
     Active Substance: LAMOTRIGINE
     Indication: Depression
     Dosage: 75 MG
     Route: 065
  5. LAMOTRIGINE [Suspect]
     Active Substance: LAMOTRIGINE
     Dosage: UNK
     Route: 065
  6. ZOPICLONE [Suspect]
     Active Substance: ZOPICLONE
     Indication: Major depression
     Dosage: 7.5 MG
     Route: 065
  7. ZOPICLONE [Suspect]
     Active Substance: ZOPICLONE
     Dosage: 15 MG
     Route: 065
  8. VENLAFAXINE HCL [Suspect]
     Active Substance: VENLAFAXINE HYDROCHLORIDE
     Indication: Major depression
     Dosage: 150 MG
     Route: 065
  9. VENLAFAXINE HCL [Suspect]
     Active Substance: VENLAFAXINE HYDROCHLORIDE
     Indication: Anxiety
     Dosage: UNK
     Route: 065
  10. VENLAFAXINE HCL [Suspect]
     Active Substance: VENLAFAXINE HYDROCHLORIDE
     Dosage: UNK
     Route: 065
  11. FLURAZEPAM [Suspect]
     Active Substance: FLURAZEPAM HYDROCHLORIDE
     Indication: Major depression
     Dosage: 15 MG
     Route: 065
  12. LEVOMEPROMAZINE MALEATE [Suspect]
     Active Substance: LEVOMEPROMAZINE MALEATE
     Indication: Major depression
     Dosage: 25 MG
     Route: 065
  13. LEVOMEPROMAZINE MALEATE [Suspect]
     Active Substance: LEVOMEPROMAZINE MALEATE
     Indication: Anxiety
     Dosage: 50 MG
     Route: 065
  14. LEVOMEPROMAZINE MALEATE [Suspect]
     Active Substance: LEVOMEPROMAZINE MALEATE
     Indication: Depression
  15. MIRTAZAPINE [Suspect]
     Active Substance: MIRTAZAPINE
     Indication: Major depression
     Dosage: 45 MG
     Route: 065
  16. NORTRIPTYLINE HYDROCHLORIDE [Suspect]
     Active Substance: NORTRIPTYLINE HYDROCHLORIDE
     Indication: Major depression
     Dosage: 50 MG
     Route: 065
  17. NORTRIPTYLINE HYDROCHLORIDE [Suspect]
     Active Substance: NORTRIPTYLINE HYDROCHLORIDE
     Indication: Anxiety
     Dosage: 50 MG
     Route: 065
  18. QUETIAPINE FUMARATE [Suspect]
     Active Substance: QUETIAPINE FUMARATE
     Indication: Major depression
     Dosage: 200 MG
     Route: 048
  19. QUETIAPINE FUMARATE [Suspect]
     Active Substance: QUETIAPINE FUMARATE
     Indication: Anxiety
     Dosage: 300 MG
     Route: 048
  20. QUETIAPINE FUMARATE [Suspect]
     Active Substance: QUETIAPINE FUMARATE
     Dosage: 600 MG
     Route: 048
  21. TEMAZEPAM [Suspect]
     Active Substance: TEMAZEPAM
     Indication: Major depression
     Dosage: 30 MG
     Route: 065

REACTIONS (16)
  - Suicide attempt [Recovered/Resolved]
  - Abulia [Recovered/Resolved]
  - Decreased interest [Recovered/Resolved]
  - Depressed mood [Recovered/Resolved]
  - Emotional distress [Recovered/Resolved]
  - Insomnia [Recovered/Resolved]
  - Feelings of worthlessness [Recovered/Resolved]
  - Restless legs syndrome [Recovered/Resolved]
  - Major depression [Recovered/Resolved]
  - Obsessive-compulsive disorder [Recovered/Resolved]
  - Sleep disorder [Recovered/Resolved]
  - Depression [Recovered/Resolved]
  - Psychomotor hyperactivity [Recovered/Resolved]
  - Drug intolerance [Recovered/Resolved]
  - Drug ineffective [Recovered/Resolved]
  - Therapeutic product effect incomplete [Recovered/Resolved]
